FAERS Safety Report 22711101 (Version 13)
Quarter: 2024Q4

REPORT INFORMATION
  Report Type: Report from Study
  Country: CA (occurrence: CA)
  Receive Date: 20230717
  Receipt Date: 20241218
  Transmission Date: 20250115
  Serious: Yes (Hospitalization, Other)
  Sender: GLAXOSMITHKLINE
  Company Number: CA-GLAXOSMITHKLINE-CA2023AMR095389

PATIENT

DRUGS (8)
  1. MEPOLIZUMAB [Suspect]
     Active Substance: MEPOLIZUMAB
     Indication: Asthma
     Dosage: 100 MG, Q4W
     Route: 058
     Dates: start: 20200827
  2. MEPOLIZUMAB [Suspect]
     Active Substance: MEPOLIZUMAB
     Indication: Asthma
     Dosage: 100 MG, Q4W
     Route: 058
  3. MEPOLIZUMAB [Suspect]
     Active Substance: MEPOLIZUMAB
     Indication: Asthma
     Dosage: 100 MG, Q3W
     Route: 058
  4. MEPOLIZUMAB [Suspect]
     Active Substance: MEPOLIZUMAB
     Indication: Asthma
     Dosage: 100 MG, Q4W
     Route: 058
  5. MEPOLIZUMAB [Suspect]
     Active Substance: MEPOLIZUMAB
     Indication: Asthma
     Dosage: 100 MG, Q4W
     Route: 058
  6. MEPOLIZUMAB [Suspect]
     Active Substance: MEPOLIZUMAB
     Indication: Asthma
     Dosage: 100 MG, Q4W
     Route: 058
  7. MEPOLIZUMAB [Suspect]
     Active Substance: MEPOLIZUMAB
     Indication: Asthma
     Dosage: 100 MG, Q4W
     Route: 058
  8. MEPOLIZUMAB [Suspect]
     Active Substance: MEPOLIZUMAB
     Indication: Asthma
     Dosage: 100 MG, Q4W
     Route: 058

REACTIONS (34)
  - Pneumonia [Recovering/Resolving]
  - Pyelonephritis [Unknown]
  - Angina pectoris [Unknown]
  - Urinary retention [Unknown]
  - Nephrolithiasis [Unknown]
  - Sputum retention [Recovering/Resolving]
  - Panic attack [Unknown]
  - Feeding disorder [Unknown]
  - Weight decreased [Unknown]
  - Cholelithiasis [Not Recovered/Not Resolved]
  - Vital functions abnormal [Unknown]
  - Rales [Not Recovered/Not Resolved]
  - Secretion discharge [Not Recovered/Not Resolved]
  - Ill-defined disorder [Unknown]
  - Increased bronchial secretion [Not Recovered/Not Resolved]
  - Positive airway pressure therapy [Unknown]
  - Migraine [Not Recovered/Not Resolved]
  - Blood pressure increased [Unknown]
  - Respiratory disorder [Unknown]
  - Renal colic [Unknown]
  - Micturition urgency [Unknown]
  - Neuralgia [Unknown]
  - Condition aggravated [Unknown]
  - Sputum discoloured [Unknown]
  - Intermittent claudication [Unknown]
  - Candida infection [Unknown]
  - Joint injection [Unknown]
  - Dysuria [Unknown]
  - Pollakiuria [Unknown]
  - Foot deformity [Unknown]
  - Productive cough [Unknown]
  - Dyspnoea [Not Recovered/Not Resolved]
  - Body temperature increased [Unknown]
  - Off label use [Unknown]

NARRATIVE: CASE EVENT DATE: 20231214
